FAERS Safety Report 8983909 (Version 1)
Quarter: 2012Q4

REPORT INFORMATION
  Report Type: Spontaneous
  Country: US (occurrence: None)
  Receive Date: 20121218
  Receipt Date: 20121218
  Transmission Date: 20130627
  Serious: Yes (Other)
  Sender: FDA-Public Use
  Company Number: None

PATIENT
  Age: 56 Year
  Sex: Female
  Weight: 63.5 kg

DRUGS (1)
  1. PROMETRIUM [Suspect]
     Indication: HRT
     Route: 048

REACTIONS (2)
  - Intercepted drug dispensing error [None]
  - Product container seal issue [None]
